FAERS Safety Report 10331970 (Version 1)
Quarter: 2014Q3

REPORT INFORMATION
  Report Type: Spontaneous
  Country: US (occurrence: US)
  Receive Date: 20140722
  Receipt Date: 20140722
  Transmission Date: 20150326
  Serious: No
  Sender: FDA-Public Use
  Company Number: US-UNITED THERAPEUTICS-UNT-2014-001153

PATIENT
  Age: 68 Year
  Sex: Male

DRUGS (1)
  1. REMODULIN [Suspect]
     Active Substance: TREPROSTINIL
     Indication: COR PULMONALE CHRONIC
     Dosage: 0.012 ?G/KG, CONTINUING
     Route: 065

REACTIONS (6)
  - Drug administration error [Unknown]
  - Feeling abnormal [Unknown]
  - Chills [Unknown]
  - Tremor [Unknown]
  - Dizziness [Unknown]
  - Dyspnoea exertional [Unknown]

NARRATIVE: CASE EVENT DATE: 201405
